FAERS Safety Report 6708675-9 (Version None)
Quarter: 2010Q2

REPORT INFORMATION
  Report Type: 
  Country: None (occurrence: None)
  Receive Date: 20100503
  Receipt Date: 20100420
  Transmission Date: 20101027
  Serious: Yes (Hospitalization)
  Sender: FDA-Public Use
  Company Number: FR-GENENTECH-300146

PATIENT
  Age: 25 Year
  Sex: Female

DRUGS (23)
  1. MABTHERA [Suspect]
     Indication: NON-HODGKIN'S LYMPHOMA
     Dosage: 750 MG, UNK
     Route: 042
     Dates: start: 20100317, end: 20100317
  2. MABTHERA [Suspect]
     Dosage: UNK
     Route: 042
     Dates: start: 20100331
  3. ALLOPURINOL [Suspect]
     Indication: DRUG USE FOR UNKNOWN INDICATION
     Dosage: UNK
     Route: 048
     Dates: start: 20100201, end: 20100327
  4. DOXORUBICIN HCL [Suspect]
     Indication: NON-HODGKIN'S LYMPHOMA
     Dosage: 100 MG, UNK
     Route: 042
     Dates: start: 20100317, end: 20100317
  5. DOXORUBICIN HCL [Suspect]
     Dosage: UNK
     Route: 042
     Dates: start: 20100331
  6. CYCLOPHOSPHAMIDE [Suspect]
     Indication: NON-HODGKIN'S LYMPHOMA
     Dosage: 1500 MG, UNK
     Route: 042
     Dates: start: 20100317, end: 20100317
  7. CYCLOPHOSPHAMIDE [Suspect]
     Dosage: UNK
     Route: 042
     Dates: start: 20100331
  8. VINCRISTINE [Suspect]
     Indication: NON-HODGKIN'S LYMPHOMA
     Dosage: 2 MG, UNK
     Route: 042
     Dates: start: 20100317, end: 20100317
  9. VINCRISTINE [Suspect]
     Dosage: UNK
     Route: 042
     Dates: start: 20100331
  10. CORTANCYL [Suspect]
     Indication: DRUG USE FOR UNKNOWN INDICATION
     Dosage: UNK
     Route: 048
     Dates: start: 20100201
  11. CORTANCYL [Suspect]
     Dosage: UNK
     Route: 048
     Dates: end: 20100325
  12. METHOTREXATE [Suspect]
     Indication: DRUG USE FOR UNKNOWN INDICATION
     Dosage: 15 MG, UNK
     Route: 037
     Dates: start: 20100317, end: 20100317
  13. DEPO-MEDROL [Suspect]
     Indication: DRUG USE FOR UNKNOWN INDICATION
     Dosage: 15 MG, UNK
     Route: 037
     Dates: start: 20100317, end: 20100317
  14. NEXIUM [Suspect]
     Indication: DRUG USE FOR UNKNOWN INDICATION
     Dosage: UNK
     Route: 048
     Dates: start: 20100201, end: 20100327
  15. PRIMPERAN TAB [Suspect]
     Indication: DRUG USE FOR UNKNOWN INDICATION
     Dosage: UNK
     Route: 048
     Dates: start: 20100201, end: 20100327
  16. PRIMPERAN TAB [Suspect]
     Dosage: UNK
     Route: 048
     Dates: start: 20100331
  17. CYTARABINE [Suspect]
     Indication: DRUG USE FOR UNKNOWN INDICATION
     Dosage: 40 MG, UNK
     Route: 037
     Dates: start: 20100317, end: 20100317
  18. CYTARABINE [Suspect]
     Dosage: UNK
     Route: 037
     Dates: start: 20100331
  19. MELIANE [Concomitant]
     Indication: CONTRACEPTION
     Route: 048
  20. PERFALGAN [Concomitant]
     Indication: DRUG USE FOR UNKNOWN INDICATION
     Dosage: UNK
     Dates: start: 20100331
  21. POLARAMINE [Concomitant]
     Indication: DRUG USE FOR UNKNOWN INDICATION
     Dosage: UNK
     Dates: start: 20100331
  22. ZOPHREN [Concomitant]
     Indication: DRUG USE FOR UNKNOWN INDICATION
     Dosage: UNK
     Dates: start: 20100331
  23. NEULASTA [Concomitant]
     Indication: DRUG USE FOR UNKNOWN INDICATION
     Dosage: UNK
     Dates: start: 20100331

REACTIONS (2)
  - CEREBRAL VENOUS THROMBOSIS [None]
  - HEADACHE [None]
